FAERS Safety Report 8465618-8 (Version None)
Quarter: 2012Q2

REPORT INFORMATION
  Report Type: 
  Country: None (occurrence: None)
  Receive Date: 20120621
  Receipt Date: 20120621
  Transmission Date: 20120825
  Serious: No
  Sender: FDA-Public Use
  Company Number: None

PATIENT
  Sex: Female

DRUGS (8)
  1. LISINOPRIL [Concomitant]
  2. REVLIMID [Suspect]
     Indication: MULTIPLE MYELOMA
     Dosage: REVLIMID 15 MG EVERY OTHER DAY ORALLY
     Route: 048
     Dates: start: 20110720, end: 20120201
  3. GLARGINE INSULIN [Concomitant]
  4. LOVASTATIN [Concomitant]
  5. OMEPRAZOLE [Concomitant]
  6. ATENOLOL [Concomitant]
  7. GLIPIZIDE [Concomitant]
  8. PRAMIPEXOLE DIHYCHLORIDE [Concomitant]

REACTIONS (3)
  - NEUTROPENIA [None]
  - TREATMENT NONCOMPLIANCE [None]
  - THROMBOCYTOPENIA [None]
